FAERS Safety Report 9260009 (Version 2)
Quarter: 2013Q2

REPORT INFORMATION
  Report Type: Spontaneous
  Country: FR (occurrence: FR)
  Receive Date: 20130429
  Receipt Date: 20130517
  Transmission Date: 20140414
  Serious: Yes (Other)
  Sender: FDA-Public Use
  Company Number: FR-JNJFOC-20130412886

PATIENT
  Age: 82 Year
  Sex: Female
  Weight: 62 kg

DRUGS (6)
  1. XARELTO [Suspect]
     Indication: ATRIAL FIBRILLATION
     Route: 048
     Dates: start: 20121002, end: 20130406
  2. XARELTO [Suspect]
     Indication: CEREBROVASCULAR ACCIDENT PROPHYLAXIS
     Route: 048
     Dates: start: 20121002, end: 20130406
  3. SIMVASTATINE [Concomitant]
     Route: 065
     Dates: start: 2000, end: 20130305
  4. KARDEGIC [Concomitant]
     Route: 065
  5. ATENOLOL [Concomitant]
     Route: 065
     Dates: start: 1998
  6. LISINOPRIL [Concomitant]
     Route: 065
     Dates: start: 2007

REACTIONS (3)
  - Drug eruption [Not Recovered/Not Resolved]
  - Urticaria [Not Recovered/Not Resolved]
  - Rash pustular [Not Recovered/Not Resolved]
